FAERS Safety Report 20459880 (Version 2)
Quarter: 2022Q1

REPORT INFORMATION
  Report Type: Spontaneous
  Country: LB (occurrence: None)
  Receive Date: 20220211
  Receipt Date: 20220225
  Transmission Date: 20220424
  Serious: Yes (Other)
  Sender: FDA-Public Use
  Company Number: LB-ROCHE-3013744

PATIENT
  Sex: Female

DRUGS (7)
  1. RITUXIMAB [Suspect]
     Active Substance: RITUXIMAB
     Indication: Diffuse large B-cell lymphoma
     Dosage: 375 MG/M2 ON DAY 1 OF EACH CYCLE
     Route: 042
     Dates: start: 20190423, end: 20190808
  2. POLATUZUMAB VEDOTIN [Suspect]
     Active Substance: POLATUZUMAB VEDOTIN
     Indication: Diffuse large B-cell lymphoma
     Dosage: POLATUZUMAB VEDOTIN 1.8 MG/KG IV ON DAY 2 OF CYCLE 1, AND DAY 1 OF SUBSEQUENT CYCLES) (CYCLE 1 ON 10
     Route: 042
     Dates: start: 20210510, end: 20210824
  3. CYCLOPHOSPHAMIDE [Suspect]
     Active Substance: CYCLOPHOSPHAMIDE
     Indication: Diffuse large B-cell lymphoma
     Dosage: STARTED ON R-CHOP (INTRAVENOUS CYCLOPHOSPHAMIDE 750 MG/M(2)
     Route: 042
     Dates: start: 20190423, end: 20190808
  4. DOXORUBICIN [Suspect]
     Active Substance: DOXORUBICIN
     Indication: Diffuse large B-cell lymphoma
     Route: 065
     Dates: start: 20190423, end: 20190808
  5. VINCRISTINE [Suspect]
     Active Substance: VINCRISTINE
     Indication: Diffuse large B-cell lymphoma
     Dosage: VINCRISTINE 1.4 MG/M(2) (MAXIMUM DOSE 2 MG)
     Route: 065
     Dates: start: 20190423, end: 20190808
  6. PREDNISONE [Suspect]
     Active Substance: PREDNISONE
     Indication: Diffuse large B-cell lymphoma
     Dosage: ORAL PREDNISOLONE 40 MG/M(2) ON DAYS 1-5, ADMINISTERED EVERY 21 DAYS)?(CYCLE 1 ON 23/APR/2019 AND CY
     Route: 048
     Dates: start: 20190423, end: 20190808
  7. BENDAMUSTINE [Suspect]
     Active Substance: BENDAMUSTINE
     Indication: Diffuse large B-cell lymphoma
     Dosage: BENDAMUSTINE 90 MG/M2 INTRAVENOUSLY (IV) ON DAYS 2 AND 3 OF CYCLE 1, AND DAYS 1 AND 2 OF SUBSEQUENT
     Route: 042
     Dates: start: 20210510, end: 20210824

REACTIONS (3)
  - Diffuse large B-cell lymphoma recurrent [Unknown]
  - Disease progression [Unknown]
  - Therapeutic product effect decreased [Unknown]
